FAERS Safety Report 15959929 (Version 1)
Quarter: 2019Q1

REPORT INFORMATION
  Report Type: Spontaneous
  Country: US (occurrence: US)
  Receive Date: 20190214
  Receipt Date: 20190214
  Transmission Date: 20190417
  Serious: No
  Sender: FDA-Public Use
  Company Number: US-ROCHE-2099287

PATIENT
  Age: 70 Year
  Sex: Female

DRUGS (1)
  1. VISMODEGIB. [Suspect]
     Active Substance: VISMODEGIB
     Indication: BASAL CELL NAEVUS SYNDROME
     Dosage: ONGOING: UNKNOWN
     Route: 065

REACTIONS (3)
  - Distractibility [Unknown]
  - Memory impairment [Unknown]
  - Amnesia [Unknown]
